FAERS Safety Report 9330263 (Version 3)
Quarter: 2013Q2

REPORT INFORMATION
  Report Type: Spontaneous
  Country: DE (occurrence: DE)
  Receive Date: 20130605
  Receipt Date: 20130624
  Transmission Date: 20140414
  Serious: Yes (Other)
  Sender: FDA-Public Use
  Company Number: DE-ROCHE-1232090

PATIENT
  Age: 45 Year
  Sex: Female
  Weight: 87.7 kg

DRUGS (3)
  1. PERJETA [Suspect]
     Indication: BREAST CANCER METASTATIC
     Route: 042
     Dates: start: 20130328
  2. HERCEPTIN [Suspect]
     Indication: BREAST CANCER METASTATIC
     Route: 065
  3. DOCETAXEL [Suspect]
     Indication: BREAST CANCER METASTATIC
     Route: 042
     Dates: start: 20130214, end: 20130328

REACTIONS (1)
  - Alopecia [Not Recovered/Not Resolved]
